FAERS Safety Report 21949660 (Version 1)
Quarter: 2023Q1

REPORT INFORMATION
  Report Type: Spontaneous
  Country: US (occurrence: None)
  Receive Date: 20230202
  Receipt Date: 20230202
  Transmission Date: 20230417
  Serious: Yes (Other)
  Sender: FDA-Public Use
  Company Number: None

PATIENT
  Age: 82 Year
  Sex: Male
  Weight: 78.3 kg

DRUGS (19)
  1. AXICABTAGENE CILOLEUCEL [Suspect]
     Active Substance: AXICABTAGENE CILOLEUCEL
     Indication: Diffuse large B-cell lymphoma
     Dosage: FREQUENCY : ONCE;?
     Route: 041
     Dates: start: 20221024, end: 20221024
  2. ACYCLOVIR [Concomitant]
     Active Substance: ACYCLOVIR
     Dates: end: 20221115
  3. ALTEPLASE [Concomitant]
     Active Substance: ALTEPLASE
     Dates: end: 20221031
  4. APIXABAN [Concomitant]
     Active Substance: APIXABAN
     Dates: start: 20221028, end: 20221114
  5. ATORVASTATIN [Concomitant]
     Active Substance: ATORVASTATIN
     Dates: start: 20221024, end: 20221115
  6. CHLORHEXIDINE [Concomitant]
     Active Substance: CHLORHEXIDINE
     Dates: start: 20221024, end: 20221103
  7. CIPROFLOXACIN [Concomitant]
     Active Substance: CIPROFLOXACIN
     Dates: start: 20221024, end: 20221029
  8. DOCUSATE SODIUM [Concomitant]
     Active Substance: DOCUSATE SODIUM
     Dates: start: 20221027, end: 20221103
  9. escitalppram [Concomitant]
     Dates: end: 20221114
  10. FLUCONAZOLE [Concomitant]
     Active Substance: FLUCONAZOLE
     Dates: start: 20221024, end: 20221103
  11. TRELEGY ELLIPTA [Concomitant]
     Active Substance: FLUTICASONE FUROATE\UMECLIDINIUM BROMIDE\VILANTEROL TRIFENATATE
     Dates: start: 20221024, end: 20221103
  12. LACTULOSE [Concomitant]
     Active Substance: LACTULOSE
     Dates: start: 20221025, end: 20221031
  13. MAGNESIUM [Concomitant]
     Active Substance: MAGNESIUM
     Dates: start: 20221028, end: 20221111
  14. METOPROLOL [Concomitant]
     Active Substance: METOPROLOL
     Dates: start: 20221025, end: 20221115
  15. POTASSIUM CHLORIDE [Concomitant]
     Active Substance: POTASSIUM CHLORIDE
     Dates: start: 20221029, end: 20221114
  16. BACTRIM [Concomitant]
     Active Substance: SULFAMETHOXAZOLE\TRIMETHOPRIM
     Dates: end: 20221114
  17. supersaturated calcium phosphate rinse [Concomitant]
     Dates: start: 20221024, end: 20221103
  18. TAMSULOSIN [Concomitant]
     Active Substance: TAMSULOSIN
     Dates: start: 20221024, end: 20221115
  19. VALACYCLOVIR [Concomitant]
     Active Substance: VALACYCLOVIR HYDROCHLORIDE
     Dates: start: 20221024, end: 20221103

REACTIONS (2)
  - Cytokine release syndrome [None]
  - Infusion related reaction [None]

NARRATIVE: CASE EVENT DATE: 20221030
